FAERS Safety Report 13227626 (Version 1)
Quarter: 2017Q1

REPORT INFORMATION
  Report Type: Spontaneous
  Country: DE (occurrence: DE)
  Receive Date: 20170213
  Receipt Date: 20170213
  Transmission Date: 20170428
  Serious: Yes (Disabling)
  Sender: FDA-Public Use
  Company Number: DE-SA-2017SA021911

PATIENT
  Age: 75 Year
  Sex: Male
  Weight: 88 kg

DRUGS (1)
  1. FEXOFENADIN WINTHROP [Suspect]
     Active Substance: FEXOFENADINE HYDROCHLORIDE
     Indication: SEASONAL ALLERGY
     Route: 048
     Dates: start: 20160407, end: 20160414

REACTIONS (2)
  - Anosmia [Recovered/Resolved with Sequelae]
  - Ageusia [Recovered/Resolved with Sequelae]

NARRATIVE: CASE EVENT DATE: 20160414
